FAERS Safety Report 9001957 (Version 1)
Quarter: 2013Q1

REPORT INFORMATION
  Report Type: Spontaneous
  Country: US (occurrence: US)
  Receive Date: 20130108
  Receipt Date: 20130108
  Transmission Date: 20140127
  Serious: Yes (Hospitalization)
  Sender: FDA-Public Use
  Company Number: US-BIOGENIDEC-2007BI006537

PATIENT
  Sex: Male
  Weight: 82 kg

DRUGS (7)
  1. AVONEX [Suspect]
     Indication: MULTIPLE SCLEROSIS
     Route: 030
     Dates: start: 20001012, end: 200407
  2. AVONEX [Suspect]
     Indication: MULTIPLE SCLEROSIS
     Route: 030
     Dates: start: 200408, end: 200504
  3. AVONEX [Suspect]
     Indication: MULTIPLE SCLEROSIS
     Route: 030
     Dates: start: 200505, end: 20100909
  4. AVONEX [Suspect]
     Indication: MULTIPLE SCLEROSIS
     Route: 030
     Dates: start: 201009
  5. AVONEX [Suspect]
     Indication: MULTIPLE SCLEROSIS
     Route: 030
  6. TYLENOL [Concomitant]
  7. CIALIS [Concomitant]

REACTIONS (9)
  - Obesity [Recovered/Resolved]
  - Polyneuropathy [Not Recovered/Not Resolved]
  - Sciatica [Not Recovered/Not Resolved]
  - Rheumatoid arthritis [Unknown]
  - Gait disturbance [Unknown]
  - Muscular weakness [Unknown]
  - Depression [Unknown]
  - Anxiety [Recovered/Resolved]
  - Vomiting [Recovered/Resolved]
